FAERS Safety Report 7768105-5 (Version None)
Quarter: 2011Q3

REPORT INFORMATION
  Report Type: 
  Country: None (occurrence: None)
  Receive Date: 20110922
  Receipt Date: 20110915
  Transmission Date: 20111222
  Serious: Yes (Other)
  Sender: FDA-Public Use
  Company Number: IT-BRISTOL-MYERS SQUIBB COMPANY-16062150

PATIENT
  Age: 23 Year
  Sex: Female

DRUGS (3)
  1. EFAVIRENZ [Suspect]
  2. ATAZANAVIR [Suspect]
  3. RITONAVIR [Suspect]

REACTIONS (2)
  - JAUNDICE [None]
  - RASH [None]
